FAERS Safety Report 5318080-8 (Version None)
Quarter: 2007Q1

REPORT INFORMATION
  Report Type: 
  Country: None (occurrence: None)
  Receive Date: 20070201
  Receipt Date: 20060705
  Transmission Date: 20070707
  Serious: Yes (Hospitalization)
  Sender: FDA-Public Use
  Company Number: MEDI-0004257

PATIENT
  Age: 56 Year
  Sex: Male

DRUGS (2)
  1. ETHYOL [Suspect]
     Indication: CHEMOTHERAPY
     Dosage: 1 IN 3 WK, SUBCUTANEOUS
     Route: 058
  2. CISPLATIN [Concomitant]

REACTIONS (2)
  - INJECTION SITE REACTION [None]
  - RASH GENERALISED [None]
